FAERS Safety Report 12993341 (Version 3)
Quarter: 2019Q4

REPORT INFORMATION
  Report Type: Report from Study
  Country: FR (occurrence: FR)
  Receive Date: 20161202
  Receipt Date: 20191217
  Transmission Date: 20200122
  Serious: Yes (Hospitalization)
  Sender: FDA-Public Use
  Company Number: FR-PFIZER INC-2016546307

PATIENT
  Age: 60 Year
  Sex: Male
  Weight: 60 kg

DRUGS (6)
  1. SUTENT [Suspect]
     Active Substance: SUNITINIB MALATE
     Indication: RENAL CELL CARCINOMA
     Dosage: UNK, 1X/DAY (4 WK/6)
     Route: 048
     Dates: start: 20161031, end: 20161120
  2. OXYNORMORO [Concomitant]
     Active Substance: OXYCODONE HYDROCHLORIDE
     Indication: PELVIC PAIN
     Dosage: 5 MG, 1X/DAY
     Route: 048
     Dates: start: 20161018
  3. CACIT VITAMIN D3 [Concomitant]
     Active Substance: CALCIUM CARBONATE\CHOLECALCIFEROL
     Indication: SUPPLEMENTATION THERAPY
     Dosage: 1000 MG, 1X/DAY
     Route: 048
     Dates: start: 20161003
  4. DUROGESIC [Concomitant]
     Active Substance: FENTANYL
     Indication: PELVIC PAIN
     Dosage: 75 UG, EVERY 72 HOURS
     Route: 023
     Dates: start: 20160913
  5. LYRICA [Concomitant]
     Active Substance: PREGABALIN
     Indication: PELVIC PAIN
     Dosage: 50 MG, 2X/DAY
     Route: 048
     Dates: start: 20160913, end: 20161128
  6. XGEVA [Concomitant]
     Active Substance: DENOSUMAB
     Indication: PROPHYLAXIS
     Dosage: 120 MG, MONTHLY (Q4WK)
     Route: 058
     Dates: start: 20161107

REACTIONS (1)
  - General physical health deterioration [Recovered/Resolved]

NARRATIVE: CASE EVENT DATE: 20161121
